FAERS Safety Report 9861250 (Version 2)
Quarter: 2014Q1

REPORT INFORMATION
  Report Type: Spontaneous
  Country: US (occurrence: US)
  Receive Date: 20140202
  Receipt Date: 20140202
  Transmission Date: 20141002
  Serious: No
  Sender: FDA-Public Use
  Company Number: US-ALLERGAN-1304422US

PATIENT
  Age: 47 Year
  Sex: Female

DRUGS (5)
  1. BOTOX COSMETIC [Suspect]
     Indication: SKIN WRINKLING
     Dosage: 24 UNITS, SINGLE
     Route: 030
     Dates: start: 20130321, end: 20130321
  2. BOTOX COSMETIC [Suspect]
     Indication: SKIN WRINKLING
  3. BOTOX COSMETIC [Suspect]
     Indication: SKIN WRINKLING
  4. UNSPECIFIED BIRTH CONTROL MEDICATION [Concomitant]
     Indication: PRODUCT USED FOR UNKNOWN INDICATION
  5. VITAMINS NOS [Concomitant]
     Indication: PRODUCT USED FOR UNKNOWN INDICATION

REACTIONS (8)
  - Off label use [Unknown]
  - Rash [Unknown]
  - Rash [Unknown]
  - Rash [Unknown]
  - Rash [Unknown]
  - Rash [Not Recovered/Not Resolved]
  - Rash [Unknown]
  - Rash [Unknown]
